FAERS Safety Report 18609134 (Version 1)
Quarter: 2020Q4

REPORT INFORMATION
  Report Type: Spontaneous
  Country: CA (occurrence: CA)
  Receive Date: 20201214
  Receipt Date: 20201214
  Transmission Date: 20210114
  Serious: No
  Sender: FDA-Public Use
  Company Number: CA-ALKEM LABORATORIES LIMITED-CA-ALKEM-2020-07362

PATIENT
  Age: 40 Year
  Sex: Female

DRUGS (2)
  1. CINACALCET. [Suspect]
     Active Substance: CINACALCET
     Indication: PARATHYROID TUMOUR BENIGN
     Dosage: 30 MILLIGRAM, BID
     Route: 065
  2. CINACALCET. [Suspect]
     Active Substance: CINACALCET
     Dosage: 60 MILLIGRAM, BID
     Route: 065

REACTIONS (2)
  - Exposure during pregnancy [Unknown]
  - Nausea [Recovered/Resolved]
